FAERS Safety Report 9366028 (Version 2)
Quarter: 2013Q2

REPORT INFORMATION
  Report Type: Spontaneous
  Country: US (occurrence: US)
  Receive Date: 20130625
  Receipt Date: 20130625
  Transmission Date: 20140414
  Serious: No
  Sender: FDA-Public Use
  Company Number: US-MYLANLABS-2012S1016889

PATIENT
  Age: 56 Year
  Sex: Male

DRUGS (34)
  1. ROPINIROLE TABLETS [Suspect]
     Indication: RESTLESS LEGS SYNDROME
     Route: 048
     Dates: start: 20091027, end: 20100610
  2. ROPINIROLE TABLETS [Suspect]
     Indication: RESTLESS LEGS SYNDROME
     Route: 048
     Dates: start: 20120812, end: 20120816
  3. COMBIVENT [Concomitant]
     Indication: ASTHMA
     Route: 055
  4. ABILIFY [Concomitant]
     Route: 048
  5. CALCITROL /00508501/ [Concomitant]
     Indication: VITAMIN SUPPLEMENTATION
     Route: 048
  6. ERGOCALCIFEROL [Concomitant]
     Indication: VITAMIN SUPPLEMENTATION
     Route: 048
  7. IRON [Concomitant]
     Indication: VITAMIN SUPPLEMENTATION
     Route: 048
  8. MAGNESIUM OXIDE [Concomitant]
     Indication: VITAMIN SUPPLEMENTATION
     Route: 048
  9. NIACIN [Concomitant]
     Indication: VITAMIN SUPPLEMENTATION
     Route: 048
  10. CALCIUM PLUS VITAMIN D [Concomitant]
     Indication: VITAMIN SUPPLEMENTATION
     Route: 048
  11. CARBIDOPA AND LEVODOPA [Concomitant]
     Indication: RESTLESS LEGS SYNDROME
     Route: 048
  12. GLIPIZIDE [Concomitant]
     Indication: DIABETES MELLITUS
     Route: 048
  13. HYDROCODONE/APAP [Concomitant]
     Indication: PAIN
     Dosage: 5MG/500MG
     Route: 048
  14. METFORMIN [Concomitant]
     Indication: DIABETES MELLITUS
     Route: 048
  15. OMEPRAZOLE [Concomitant]
     Indication: GASTROOESOPHAGEAL REFLUX DISEASE
     Route: 048
  16. CRESTOR [Concomitant]
     Indication: BLOOD CHOLESTEROL INCREASED
     Route: 048
  17. EFFEXOR [Concomitant]
     Indication: DEPRESSION
     Route: 048
  18. LOSARTAN [Concomitant]
     Indication: BLOOD PRESSURE INCREASED
     Route: 048
  19. MYLANTA [Concomitant]
  20. BUSPIRONE HCL [Concomitant]
  21. CAPSAICIN [Concomitant]
     Route: 061
  22. CYCLOBENZAPRINE [Concomitant]
     Indication: MUSCLE SPASMS
     Route: 061
  23. DOCUSATE [Concomitant]
     Route: 048
  24. SENNA ALEXANDRIA EXTRACT W/DOCUSATE SODIUM [Concomitant]
     Indication: CONSTIPATION
     Route: 048
  25. FISH OIL [Concomitant]
     Indication: BLOOD CHOLESTEROL
     Route: 048
  26. FISH OIL [Concomitant]
     Indication: BLOOD CHOLESTEROL
     Route: 048
  27. FORMOTEROL FUMARATE [Concomitant]
     Route: 055
  28. FUROSEMIDE [Concomitant]
     Route: 048
  29. GABAPENTIN [Concomitant]
     Route: 048
  30. GEMFIBROZIL [Concomitant]
     Route: 048
  31. LISINOPRIL [Concomitant]
     Indication: BLOOD PRESSURE INCREASED
     Route: 048
  32. LORATADINE [Concomitant]
     Indication: MULTIPLE ALLERGIES
     Route: 048
  33. METHOCARBAMOL [Concomitant]
     Indication: MUSCLE SPASMS
     Route: 048
  34. MULTIVITAMIN [Concomitant]

REACTIONS (1)
  - Narcolepsy [Not Recovered/Not Resolved]
